FAERS Safety Report 10343375 (Version 1)
Quarter: 2014Q3

REPORT INFORMATION
  Report Type: Report from Study
  Country: GB (occurrence: GB)
  Receive Date: 20140725
  Receipt Date: 20140725
  Transmission Date: 20150326
  Serious: Yes (Hospitalization)
  Sender: FDA-Public Use
  Company Number: GB-ABBVIE-14K-167-1261464-00

PATIENT
  Age: 61 Year
  Sex: Male
  Weight: 118 kg

DRUGS (8)
  1. OMEPRAZOLE. [Concomitant]
     Active Substance: OMEPRAZOLE
     Indication: PRODUCT USED FOR UNKNOWN INDICATION
     Dates: start: 20140311
  2. PARACETAMOL [Concomitant]
     Active Substance: ACETAMINOPHEN
     Indication: PRODUCT USED FOR UNKNOWN INDICATION
     Dates: start: 20140311
  3. VITAMINS NOS [Concomitant]
     Active Substance: VITAMINS
     Indication: PRODUCT USED FOR UNKNOWN INDICATION
     Dates: start: 20140311
  4. FLUOXETINE [Concomitant]
     Active Substance: FLUOXETINE\FLUOXETINE HYDROCHLORIDE
     Indication: PRODUCT USED FOR UNKNOWN INDICATION
     Dates: start: 20030701
  5. AMLODIPINE [Concomitant]
     Active Substance: AMLODIPINE BESYLATE
     Indication: PRODUCT USED FOR UNKNOWN INDICATION
     Dates: start: 20120701, end: 20140311
  6. VITAMIN B [Concomitant]
     Active Substance: VITAMIN B
     Indication: PRODUCT USED FOR UNKNOWN INDICATION
     Dates: start: 20140311
  7. HUMIRA [Suspect]
     Active Substance: ADALIMUMAB
     Indication: PSORIASIS
     Route: 058
     Dates: start: 20130701
  8. THIAMINE HYDROCHLORIDE. [Concomitant]
     Active Substance: THIAMINE HYDROCHLORIDE
     Indication: PRODUCT USED FOR UNKNOWN INDICATION
     Dates: start: 20140311

REACTIONS (4)
  - Alcohol withdrawal syndrome [Recovered/Resolved]
  - Hypophagia [Recovered/Resolved]
  - Alcohol abuse [Recovered/Resolved]
  - Mobility decreased [Recovered/Resolved]

NARRATIVE: CASE EVENT DATE: 20140311
